FAERS Safety Report 20845576 (Version 1)
Quarter: 2022Q2

REPORT INFORMATION
  Report Type: Spontaneous
  Country: JP (occurrence: JP)
  Receive Date: 20220518
  Receipt Date: 20220518
  Transmission Date: 20220720
  Serious: Yes (Other)
  Sender: FDA-Public Use
  Company Number: JP-Fresenius Kabi-FK202205629

PATIENT
  Sex: Male

DRUGS (2)
  1. MAGNESIUM SULFATE [Suspect]
     Active Substance: MAGNESIUM SULFATE
     Indication: Premature rupture of membranes
     Route: 064
  2. MAGNESIUM SULFATE [Suspect]
     Active Substance: MAGNESIUM SULFATE
     Route: 064

REACTIONS (4)
  - Hypocalcaemia [Recovered/Resolved]
  - Hypercalcaemia [Recovered/Resolved]
  - Foetal exposure during pregnancy [Recovered/Resolved]
  - Bone development abnormal [Unknown]
